FAERS Safety Report 6063252-0 (Version None)
Quarter: 2009Q1

REPORT INFORMATION
  Report Type: 
  Country: None (occurrence: None)
  Receive Date: 20090203
  Receipt Date: 20090120
  Transmission Date: 20090719
  Serious: Yes (Hospitalization)
  Sender: FDA-Public Use
  Company Number: BR-ROCHE-609742

PATIENT
  Sex: Male
  Weight: 80 kg

DRUGS (3)
  1. RIBAVIRIN [Suspect]
     Indication: HEPATITIS C
     Route: 048
     Dates: start: 20080327
  2. PEG-INTERFERON A-2A (RO 25-8310) [Suspect]
     Indication: HEPATITIS C
     Route: 058
     Dates: start: 20080327
  3. ERITROPOIETIN [Concomitant]
     Indication: ANAEMIA
     Route: 058
     Dates: start: 20081204

REACTIONS (10)
  - ABDOMINAL PAIN [None]
  - ANOREXIA [None]
  - CONSTIPATION [None]
  - COUGH [None]
  - HEPATIC NEOPLASM MALIGNANT [None]
  - PYREXIA [None]
  - RED BLOOD CELL COUNT DECREASED [None]
  - SPUTUM DISCOLOURED [None]
  - THERAPEUTIC RESPONSE DECREASED [None]
  - WHITE BLOOD CELL COUNT DECREASED [None]
